FAERS Safety Report 20418973 (Version 1)
Quarter: 2022Q1

REPORT INFORMATION
  Report Type: Report from Study
  Country: US (occurrence: US)
  Receive Date: 20220202
  Receipt Date: 20220202
  Transmission Date: 20220424
  Serious: Yes (Other)
  Sender: FDA-Public Use
  Company Number: US-AMGEN-USASL2022014092

PATIENT
  Sex: Female

DRUGS (1)
  1. ENBREL [Suspect]
     Active Substance: ETANERCEPT
     Indication: Rheumatoid arthritis
     Dosage: 50 MILLIGRAM, QWK
     Route: 065

REACTIONS (6)
  - Pulmonary fibrosis [Unknown]
  - Pulmonary arterial hypertension [Unknown]
  - Pulmonary congestion [Unknown]
  - Rheumatoid lung [Unknown]
  - Rheumatoid arthritis [Unknown]
  - Immunoglobulins increased [Unknown]
